FAERS Safety Report 5402305-4 (Version None)
Quarter: 2007Q3

REPORT INFORMATION
  Report Type: 
  Country: None (occurrence: None)
  Receive Date: 20070730
  Receipt Date: 20070730
  Transmission Date: 20080115
  Serious: No
  Sender: FDA-Public Use
  Company Number: None

PATIENT
  Sex: Female
  Weight: 81.6475 kg

DRUGS (2)
  1. DIHYDROPYRIDINE AMLODIPINE (GENERIC NORVASC) [Suspect]
     Indication: HYPERTENSION
     Dosage: 10 MG QD PO
     Route: 048
     Dates: start: 20070723
  2. DIHYDROPYRIDINE AMLODIPINE (GENERIC NORVASC) [Suspect]
     Indication: HYPERTENSION
     Dosage: 10 MG QD PO
     Route: 048
     Dates: start: 20070724

REACTIONS (3)
  - DIALYSIS [None]
  - OEDEMA PERIPHERAL [None]
  - RENAL FAILURE [None]
